FAERS Safety Report 4608671-1 (Version None)
Quarter: 2005Q1

REPORT INFORMATION
  Report Type: 
  Country: None (occurrence: None)
  Receive Date: 20050315
  Receipt Date: 20050311
  Transmission Date: 20050727
  Serious: Yes (Hospitalization)
  Sender: FDA-Public Use
  Company Number: FR-MERCK-0503FRA00052

PATIENT
  Age: 73 Year
  Sex: Male

DRUGS (12)
  1. COZAAR [Suspect]
     Indication: HYPERTENSION
     Route: 048
     Dates: start: 19970615, end: 20050101
  2. COZAAR [Suspect]
     Route: 048
     Dates: start: 20050101, end: 20050201
  3. COZAAR [Suspect]
     Route: 048
     Dates: start: 20050201
  4. RILMENIDINE PHOSPHATE [Concomitant]
     Indication: HYPERTENSION
     Route: 048
  5. FUROSEMIDE AND SPIRONOLACTONE [Concomitant]
     Indication: HYPERTENSION
     Route: 048
  6. FUROSEMIDE [Concomitant]
     Indication: HYPERTENSION
     Route: 048
  7. NITROGLYCERIN [Concomitant]
     Indication: ANGINA PECTORIS
     Route: 061
  8. AMLODIPINE BESYLATE [Concomitant]
     Indication: HYPERTENSION
     Route: 048
  9. LEVOTHYROXINE SODIUM [Concomitant]
     Indication: HYPOTHYROIDISM
     Route: 048
  10. GLICLAZIDE [Concomitant]
     Indication: DIABETES MELLITUS
     Route: 048
  11. ASPIRIN [Concomitant]
     Indication: CORONARY ARTERY DISEASE
     Route: 048
  12. TESTOSTERONE [Concomitant]
     Indication: HYPOGONADISM
     Route: 030

REACTIONS (1)
  - PSORIASIS [None]
